FAERS Safety Report 5245596-5 (Version None)
Quarter: 2007Q1

REPORT INFORMATION
  Report Type: 
  Country: None (occurrence: None)
  Receive Date: 20070223
  Receipt Date: 20070214
  Transmission Date: 20070707
  Serious: Yes (Hospitalization)
  Sender: FDA-Public Use
  Company Number: JP-PFIZER INC-2007010296

PATIENT
  Sex: Female

DRUGS (10)
  1. ZOLOFT [Suspect]
     Indication: DEPRESSION
     Dosage: DAILY DOSE:50MG
     Route: 048
  2. LASIX [Suspect]
     Dosage: TEXT:UNKNOWN
  3. GLYCYRON [Suspect]
     Dosage: TEXT:UNKNOWN
  4. ARTIST [Suspect]
     Dosage: TEXT:UNKNOWN
  5. DAI-KENCHU-TO [Concomitant]
  6. DOGMATYL [Concomitant]
     Indication: ANOREXIA
     Dosage: DAILY DOSE:50MG
     Route: 048
     Dates: start: 20060801
  7. GASMOTIN [Concomitant]
     Indication: NAUSEA
     Dosage: DAILY DOSE:15MG
     Route: 048
  8. TOFRANIL [Concomitant]
     Indication: DEPRESSION
     Dosage: DAILY DOSE:12.5MG
     Route: 048
     Dates: start: 20060101, end: 20070115
  9. LEXOTAN [Concomitant]
     Route: 048
     Dates: start: 20060801
  10. ALL OTHER THERAPEUTIC PRODUCTS [Concomitant]
     Dates: start: 20060901, end: 20070202

REACTIONS (7)
  - ANOREXIA [None]
  - DIARRHOEA [None]
  - DYSSTASIA [None]
  - HYPOKALAEMIA [None]
  - HYPOTHYROIDISM [None]
  - NAUSEA [None]
  - SENSATION OF HEAVINESS [None]
